FAERS Safety Report 13416349 (Version 1)
Quarter: 2017Q2

REPORT INFORMATION
  Report Type: Spontaneous
  Country: US (occurrence: US)
  Receive Date: 20170407
  Receipt Date: 20170407
  Transmission Date: 20170830
  Serious: No
  Sender: FDA-Public Use
  Company Number: US-PERRIGO-17US000565

PATIENT
  Sex: Male

DRUGS (1)
  1. GENTAMICIN SULFATE. [Suspect]
     Active Substance: GENTAMICIN SULFATE
     Indication: ACCIDENTAL EXPOSURE TO PRODUCT
     Dosage: 1 APPLICATION, 4 TIMES
     Route: 047
     Dates: start: 201701, end: 201701

REACTIONS (2)
  - Accidental exposure to product [Recovered/Resolved]
  - Drug dispensing error [Recovered/Resolved]

NARRATIVE: CASE EVENT DATE: 201701
